FAERS Safety Report 24004574 (Version 1)
Quarter: 2024Q2

REPORT INFORMATION
  Report Type: Spontaneous
  Country: US (occurrence: None)
  Receive Date: 20240624
  Receipt Date: 20240624
  Transmission Date: 20240715
  Serious: Yes (Other)
  Sender: FDA-Public Use
  Company Number: 2024A143602

PATIENT

DRUGS (1)
  1. IMFINZI [Suspect]
     Active Substance: DURVALUMAB
     Route: 042

REACTIONS (6)
  - Cholangiocarcinoma [Unknown]
  - Metastases to lymph nodes [Unknown]
  - Metastases to lung [Unknown]
  - Acquired gene mutation [Unknown]
  - Hepatic neoplasm [Unknown]
  - Cough [Unknown]
